FAERS Safety Report 23337258 (Version 2)
Quarter: 2024Q1

REPORT INFORMATION
  Report Type: Spontaneous
  Country: US (occurrence: US)
  Receive Date: 20231226
  Receipt Date: 20240112
  Transmission Date: 20240410
  Serious: No
  Sender: FDA-Public Use
  Company Number: US-HALEON-USCH2023065131

PATIENT
  Age: 36 Year
  Sex: Female

DRUGS (1)
  1. CHAPSTICK NOS [Suspect]
     Active Substance: AVOBENZONE\HOMOSALATE\OCTINOXATE\OCTISALATE\OCTOCRYLENE\OXYBENZONE\TITANIUM DIOXIDE\ZINC OXIDE
     Indication: Product used for unknown indication
     Dosage: UNK
     Dates: start: 20231210, end: 20231212

REACTIONS (2)
  - Lip pain [Unknown]
  - Product complaint [Unknown]

NARRATIVE: CASE EVENT DATE: 20231210
